FAERS Safety Report 21070219 (Version 1)
Quarter: 2022Q3

REPORT INFORMATION
  Report Type: Spontaneous
  Country: US (occurrence: US)
  Receive Date: 20220712
  Receipt Date: 20220712
  Transmission Date: 20221027
  Serious: No
  Sender: FDA-Public Use
  Company Number: US-Prasco Laboratories-PRAS20220177

PATIENT
  Age: 70 Year
  Sex: Female

DRUGS (4)
  1. ESTRADIOL [Suspect]
     Active Substance: ESTRADIOL
     Indication: Vulvovaginal dryness
     Dosage: 1 GRAM
     Route: 067
     Dates: start: 20220708, end: 20220708
  2. ESTRADIOL [Suspect]
     Active Substance: ESTRADIOL
     Dosage: 1 GRAM
     Route: 067
     Dates: start: 20220709, end: 20220709
  3. ESTRADIOL [Suspect]
     Active Substance: ESTRADIOL
     Dosage: 1 GRAM
     Route: 067
     Dates: start: 20220710, end: 20220710
  4. UNSPECIFIED INGREDIENT [Concomitant]
     Active Substance: UNSPECIFIED INGREDIENT

REACTIONS (3)
  - Anxiety [Not Recovered/Not Resolved]
  - Psychomotor hyperactivity [Not Recovered/Not Resolved]
  - Inappropriate schedule of product administration [None]

NARRATIVE: CASE EVENT DATE: 20220701
